FAERS Safety Report 14458758 (Version 2)
Quarter: 2018Q3

REPORT INFORMATION
  Report Type: Report from Study
  Country: None (occurrence: US)
  Receive Date: 20180130
  Receipt Date: 20180821
  Transmission Date: 20181010
  Serious: Yes (Other)
  Sender: FDA-Public Use
  Company Number: US-ABBVIE-17K-163-2118912-00

PATIENT
  Sex: Male
  Weight: 63.56 kg

DRUGS (8)
  1. HUMIRA [Suspect]
     Active Substance: ADALIMUMAB
     Indication: PSORIASIS
     Route: 058
     Dates: start: 201705, end: 20170713
  2. HUMIRA [Suspect]
     Active Substance: ADALIMUMAB
     Route: 058
     Dates: start: 20170905
  3. LOPRESSOR [Concomitant]
     Active Substance: METOPROLOL TARTRATE
     Indication: HYPERTENSION
  4. PENICILLIN [Concomitant]
     Active Substance: PENICILLIN
     Indication: PRODUCT USED FOR UNKNOWN INDICATION
  5. PREDNISONE EYE DROPS [Concomitant]
     Active Substance: PREDNISONE
     Indication: CATARACT OPERATION
  6. MAGNESIUM [Concomitant]
     Active Substance: MAGNESIUM
     Indication: MINERAL SUPPLEMENTATION
  7. VITAMIN D [Concomitant]
     Active Substance: CHOLECALCIFEROL
     Indication: VITAMIN SUPPLEMENTATION
  8. KETOROLAC [Concomitant]
     Active Substance: KETOROLAC\KETOROLAC TROMETHAMINE
     Indication: CATARACT OPERATION

REACTIONS (6)
  - Arrhythmia [Not Recovered/Not Resolved]
  - Cardiovascular disorder [Unknown]
  - Dizziness [Recovered/Resolved]
  - Drug ineffective [Not Recovered/Not Resolved]
  - Loss of consciousness [Recovered/Resolved]
  - Heart valve incompetence [Not Recovered/Not Resolved]

NARRATIVE: CASE EVENT DATE: 2017
